FAERS Safety Report 13915718 (Version 1)
Quarter: 2017Q3

REPORT INFORMATION
  Report Type: Spontaneous
  Country: US (occurrence: None)
  Receive Date: 20170828
  Receipt Date: 20170828
  Transmission Date: 20171127
  Serious: No
  Sender: FDA-Public Use
  Company Number: None

PATIENT
  Age: 31 Year
  Sex: Female
  Weight: 73.94 kg

DRUGS (7)
  1. B12 VITAMINS [Concomitant]
  2. PEPCID [Concomitant]
     Active Substance: FAMOTIDINE
  3. VITAMIN B12 [Concomitant]
     Active Substance: CYANOCOBALAMIN
  4. CLARITIN [Concomitant]
     Active Substance: LORATADINE
  5. ZITHROMAX [Concomitant]
     Active Substance: AZITHROMYCIN DIHYDRATE
  6. MOTRIN [Concomitant]
     Active Substance: IBUPROFEN
  7. PARAGARD T 380A [Suspect]
     Active Substance: COPPER

REACTIONS (2)
  - Pregnancy with contraceptive device [None]
  - Abortion spontaneous [None]

NARRATIVE: CASE EVENT DATE: 20170827
